FAERS Safety Report 11310898 (Version 1)
Quarter: 2015Q3

REPORT INFORMATION
  Report Type: Spontaneous
  Country: TR (occurrence: TR)
  Receive Date: 20150726
  Receipt Date: 20150726
  Transmission Date: 20151125
  Serious: Yes (Other)
  Sender: FDA-Public Use
  Company Number: TR-HOSPIRA-2868185

PATIENT
  Age: 47 Year
  Sex: Female

DRUGS (4)
  1. FLUPENTHIXOL [Concomitant]
     Active Substance: FLUPENTIXOL DECANOATE
     Indication: BIPOLAR I DISORDER
  2. VALPROATE [Suspect]
     Active Substance: VALPROATE SODIUM
     Indication: BIPOLAR I DISORDER
  3. QUETIAPINE [Concomitant]
     Active Substance: QUETIAPINE
     Indication: BIPOLAR I DISORDER
  4. PROPOFOL. [Suspect]
     Active Substance: PROPOFOL
     Indication: PRODUCT USED FOR UNKNOWN INDICATION
     Dosage: NOT REPORTED

REACTIONS (2)
  - Drug interaction [Recovering/Resolving]
  - Hyperammonaemic encephalopathy [Recovering/Resolving]
